FAERS Safety Report 22873457 (Version 6)
Quarter: 2024Q1

REPORT INFORMATION
  Report Type: Spontaneous
  Country: US (occurrence: US)
  Receive Date: 20230828
  Receipt Date: 20240214
  Transmission Date: 20240410
  Serious: No
  Sender: FDA-Public Use
  Company Number: US-PFIZER INC-202300259257

PATIENT
  Age: 15 Year
  Sex: Male
  Weight: 54.3 kg

DRUGS (2)
  1. GENOTROPIN [Suspect]
     Active Substance: SOMATROPIN
     Dosage: 2.3 MG, DAILY
  2. GENOTROPIN [Suspect]
     Active Substance: SOMATROPIN
     Dosage: 2.3MG DAILY (2.2MG AND 2.4MG ALTERNATED EVERY OTHER DAY)

REACTIONS (7)
  - Product prescribing error [Unknown]
  - Product administered at inappropriate site [Unknown]
  - Device difficult to use [Unknown]
  - Drug dose omission by device [Unknown]
  - Device mechanical issue [Unknown]
  - Device physical property issue [Unknown]
  - Injection site haemorrhage [Unknown]
